FAERS Safety Report 8793743 (Version 1)
Quarter: 2012Q4

REPORT INFORMATION
  Report Type: 
  Country: US (occurrence: US)
  Receive Date: 20120917
  Receipt Date: 20120917
  Transmission Date: 20130627
  Serious: Yes (Death)
  Sender: FDA-Public Use
  Company Number: PHEH2012US018002

PATIENT
  Age: 84 Year
  Sex: Male

DRUGS (2)
  1. EXJADE [Suspect]
     Dosage: 500 mg orally, dissolve 2 tablets and take by mouth once a day
     Route: 048
  2. CARVEDILOL [Concomitant]
     Dosage: 12.5 mg, UNK

REACTIONS (1)
  - Death [Fatal]
